FAERS Safety Report 6846110-0 (Version None)
Quarter: 2010Q3

REPORT INFORMATION
  Report Type: 
  Country: None (occurrence: None)
  Receive Date: 20100715
  Receipt Date: 20071115
  Transmission Date: 20110219
  Serious: No
  Sender: FDA-Public Use
  Company Number: US-PFIZER INC-2007073314

PATIENT
  Sex: Female
  Weight: 136.4 kg

DRUGS (12)
  1. CHANTIX [Suspect]
     Indication: SMOKING CESSATION THERAPY
     Dates: start: 20070823
  2. CYMBALTA [Concomitant]
  3. ABILIFY [Concomitant]
  4. GABITRIL [Concomitant]
  5. SEROQUEL [Concomitant]
  6. LISINOPRIL [Concomitant]
     Indication: HYPERTENSION
  7. ANTIHYPERTENSIVES [Concomitant]
     Indication: HYPERTENSION
  8. ZOCOR [Concomitant]
  9. LASIX [Concomitant]
  10. SYNTHROID [Concomitant]
     Indication: THYROID DISORDER
  11. MOBIC [Concomitant]
  12. INSULIN ASPART/PROTAMINE [Concomitant]
     Indication: DIABETES MELLITUS

REACTIONS (4)
  - BLOOD GLUCOSE INCREASED [None]
  - CONSTIPATION [None]
  - HYPERSOMNIA [None]
  - URINE OUTPUT DECREASED [None]
